FAERS Safety Report 4331437-7 (Version None)
Quarter: 2004Q1

REPORT INFORMATION
  Report Type: 
  Country: None (occurrence: None)
  Receive Date: 20040329
  Receipt Date: 20040309
  Transmission Date: 20041129
  Serious: Yes (Hospitalization, Other)
  Sender: FDA-Public Use
  Company Number: 2004198432US

PATIENT
  Age: 50 Year
  Sex: Male

DRUGS (1)
  1. BACITRACIN [Suspect]
     Indication: SURGERY
     Dosage: 50000 U, UNK, INTRAPERITONEAL
     Route: 033

REACTIONS (2)
  - PERITONEAL ADHESIONS [None]
  - SURGICAL PROCEDURE REPEATED [None]
